FAERS Safety Report 5637506-3 (Version None)
Quarter: 2008Q1

REPORT INFORMATION
  Report Type: 
  Country: None (occurrence: None)
  Receive Date: 20080225
  Receipt Date: 20080214
  Transmission Date: 20080703
  Serious: Yes (Death, Hospitalization)
  Sender: FDA-Public Use
  Company Number: IS-PFIZER INC-2008014539

PATIENT
  Sex: Female

DRUGS (7)
  1. SUTENT [Suspect]
     Indication: RENAL CELL CARCINOMA
     Route: 048
     Dates: start: 20070531, end: 20071219
  2. SIMVASTATIN [Concomitant]
     Route: 048
     Dates: start: 20050101, end: 20071224
  3. PARIET [Concomitant]
     Route: 048
     Dates: start: 20070101, end: 20071224
  4. AMILORIDE HYDROCHLORIDE [Concomitant]
     Route: 048
     Dates: start: 20050101, end: 20071224
  5. HYDROCHLOROTHIAZIDE [Concomitant]
     Dates: start: 20050101
  6. LOSARTAN POTASSIUM [Concomitant]
     Route: 048
     Dates: start: 20050101, end: 20071224
  7. ASPIRIN [Concomitant]
     Route: 048

REACTIONS (2)
  - HAEMOPTYSIS [None]
  - RESPIRATORY FAILURE [None]
